FAERS Safety Report 8820988 (Version 1)
Quarter: 2012Q4

REPORT INFORMATION
  Report Type: 
  Country: US (occurrence: US)
  Receive Date: 20121002
  Receipt Date: 20121002
  Transmission Date: 20130627
  Serious: Yes (Other)
  Sender: FDA-Public Use
  Company Number: US-US-EMD SERONO, INC.-7163598

PATIENT
  Sex: Male

DRUGS (3)
  1. REBIF [Suspect]
     Indication: MULTIPLE SCLEROSIS
     Route: 058
     Dates: start: 20110823
  2. REBIF [Suspect]
     Route: 058
  3. REBIF [Suspect]
     Route: 058

REACTIONS (2)
  - Optic neuritis [Recovering/Resolving]
  - Influenza like illness [Unknown]
